FAERS Safety Report 5964620-5 (Version None)
Quarter: 2008Q4

REPORT INFORMATION
  Report Type: 
  Country: None (occurrence: None)
  Receive Date: 20081120
  Receipt Date: 20081106
  Transmission Date: 20090506
  Serious: Yes (Hospitalization)
  Sender: FDA-Public Use
  Company Number: 013967

PATIENT
  Age: 40 Year
  Sex: Female
  Weight: 66 kg

DRUGS (23)
  1. PRIALT [Suspect]
     Indication: PAIN
     Dosage: SEE IMAGE.
     Route: 037
     Dates: start: 20080811, end: 20080825
  2. PRIALT [Suspect]
     Indication: PAIN
     Dosage: SEE IMAGE.
     Route: 037
     Dates: start: 20080901, end: 20080911
  3. PRIALT [Suspect]
     Indication: PAIN
     Dosage: SEE IMAGE.
     Route: 037
     Dates: start: 20080911, end: 20080912
  4. PRIALT [Suspect]
     Indication: PAIN
     Dosage: SEE IMAGE.
     Route: 037
     Dates: start: 20080912, end: 20080913
  5. PRIALT [Suspect]
     Indication: PAIN
     Dosage: SEE IMAGE.
     Route: 037
     Dates: start: 20080913, end: 20080914
  6. PRIALT [Suspect]
     Indication: PAIN
     Dosage: SEE IMAGE.
     Route: 037
     Dates: start: 20080616
  7. CYCLIMORPH(CYCLIZINE TARTRATE, MORPHINE TARTRATE) [Suspect]
     Indication: PAIN
     Dosage: SINGLE, INTRAMUSCULAR
     Route: 030
     Dates: start: 20080907, end: 20080907
  8. ETORICOXIB (ETORICOXIB) [Concomitant]
  9. AMITRIPTYLINE HYDROCHLORIDE [Concomitant]
  10. BACLOFEN [Concomitant]
  11. LANSOPRAZOLE [Concomitant]
  12. CYCLIZINE [Concomitant]
  13. FUSIDIC ACID [Concomitant]
  14. MINOCYCLINE HCL [Concomitant]
  15. PREGABALIN (PREGABALIN) [Concomitant]
  16. METOCLOPRAMIDE [Concomitant]
  17. FUROSEMIDE [Concomitant]
  18. DIAZEPAM [Concomitant]
  19. FLUCLOXACILLIN (FLUCOXACILLIN) [Concomitant]
  20. BENZYLPENICILLIN (BENZYLPENICILLIN) [Concomitant]
  21. ACETAMINOPHEN [Concomitant]
  22. METHADONE HCL [Concomitant]
  23. KETAMINE HCL [Concomitant]

REACTIONS (3)
  - CONVULSION [None]
  - MALAISE [None]
  - PAIN [None]
